FAERS Safety Report 13415791 (Version 1)
Quarter: 2017Q2

REPORT INFORMATION
  Report Type: Spontaneous
  Country: IN (occurrence: IN)
  Receive Date: 20170406
  Receipt Date: 20170406
  Transmission Date: 20170830
  Serious: Yes (Other)
  Sender: FDA-Public Use
  Company Number: IN-FRESENIUS KABI-FK201702812

PATIENT
  Age: 74 Year
  Sex: Male

DRUGS (3)
  1. STEROIDS [Suspect]
     Active Substance: UNSPECIFIED INGREDIENT
     Indication: ANKYLOSING SPONDYLITIS
  2. NON-STEROIDAL ANTI-INFLAMMATORY DRUGS [Concomitant]
     Indication: ANKYLOSING SPONDYLITIS
  3. METHOTREXATE (MANUFACTURER UNKNOWN) [Suspect]
     Active Substance: METHOTREXATE
     Indication: ANKYLOSING SPONDYLITIS
     Route: 065

REACTIONS (2)
  - Off label use [Unknown]
  - Aspergilloma [Unknown]
